FAERS Safety Report 6303357-X (Version None)
Quarter: 2009Q3

REPORT INFORMATION
  Report Type: 
  Country: None (occurrence: None)
  Receive Date: 20090810
  Receipt Date: 20081117
  Transmission Date: 20100115
  Serious: No
  Sender: FDA-Public Use
  Company Number: US-TYCO HEALTHCARE/MALLINCKRODT-T200801982

PATIENT

DRUGS (7)
  1. PAMELOR [Suspect]
     Indication: PAIN
     Dosage: ONE OR TWO CAPSULES, QD
     Route: 048
     Dates: start: 20070701
  2. PAMELOR [Suspect]
  3. XALATAN [Concomitant]
     Indication: GLAUCOMA
     Dosage: ONE DROP EACH EYE, QD
     Route: 047
     Dates: start: 20061201
  4. LIPITOR [Concomitant]
     Indication: BLOOD CHOLESTEROL INCREASED
     Dosage: 10 MG, QD
     Route: 048
     Dates: start: 20061201
  5. ZEBETA [Concomitant]
     Indication: HYPERTENSION
     Dosage: 5 MG, UNK
     Route: 048
     Dates: start: 20070207
  6. CLONOPIN [Concomitant]
     Indication: ANXIETY
     Dosage: 1 MG, QD
     Route: 048
     Dates: start: 20061201
  7. CARDURA                            /00639301/ [Concomitant]
     Dosage: 8 MG, QD
     Route: 048
     Dates: start: 20081101

REACTIONS (4)
  - DRUG INEFFECTIVE FOR UNAPPROVED INDICATION [None]
  - DRY MOUTH [None]
  - OFF LABEL USE [None]
  - PAIN [None]
